FAERS Safety Report 7822769-6 (Version None)
Quarter: 2011Q4

REPORT INFORMATION
  Report Type: 
  Country: None (occurrence: None)
  Receive Date: 20111018
  Receipt Date: 20111004
  Transmission Date: 20120403
  Serious: Yes (Other)
  Sender: FDA-Public Use
  Company Number: US-ELI_LILLY_AND_COMPANY-US201110001562

PATIENT
  Sex: Female

DRUGS (8)
  1. NASONEX [Concomitant]
     Dosage: UNK, QD
  2. FORTEO [Suspect]
     Dosage: 20 UG, QD
     Route: 065
     Dates: start: 20110501
  3. FORTEO [Suspect]
     Indication: OSTEOPOROSIS
     Dosage: 20 UG, QD
     Route: 065
     Dates: start: 20100101, end: 20110101
  4. NAPROSYN [Concomitant]
     Dosage: UNK, QD
  5. METHOTREXATE [Concomitant]
     Dosage: 5 DF, WEEKLY (1/W)
  6. FOLIC ACID [Concomitant]
     Dosage: UNK, QD
  7. VITAMIN TAB [Concomitant]
     Dosage: UNK, QD
  8. CALCIUM CARBONATE [Concomitant]
     Dosage: UNK, QD

REACTIONS (3)
  - MALIGNANT MELANOMA [None]
  - ANXIETY [None]
  - DRUG DOSE OMISSION [None]
